FAERS Safety Report 20470431 (Version 4)
Quarter: 2022Q3

REPORT INFORMATION
  Report Type: Report from Study
  Country: KR (occurrence: KR)
  Receive Date: 20220214
  Receipt Date: 20220826
  Transmission Date: 20221026
  Serious: Yes (Death, Other)
  Sender: FDA-Public Use
  Company Number: KR-TAKEDA-2022TUS009539

PATIENT
  Age: 70 Year
  Sex: Female
  Weight: 35 kg

DRUGS (17)
  1. BRIGATINIB [Suspect]
     Active Substance: BRIGATINIB
     Indication: Non-small cell lung cancer
     Dosage: 90 MILLIGRAM, QD
     Route: 048
     Dates: start: 20210528, end: 20210607
  2. BRIGATINIB [Suspect]
     Active Substance: BRIGATINIB
     Dosage: 180 MILLIGRAM, QD
     Route: 048
     Dates: start: 20210608, end: 20220203
  3. BRIGATINIB [Suspect]
     Active Substance: BRIGATINIB
     Dosage: 90 MILLIGRAM, QD
     Route: 048
     Dates: start: 20220207, end: 20220209
  4. LEVOTHYROXINE SODIUM [Concomitant]
     Active Substance: LEVOTHYROXINE SODIUM
     Indication: Hypothyroidism
     Dosage: 88 MICROGRAM
     Route: 048
     Dates: start: 2010, end: 20220209
  5. LIPITOR [Concomitant]
     Active Substance: ATORVASTATIN CALCIUM
     Indication: Hypothyroidism
     Dosage: 10 MILLIGRAM
     Route: 048
     Dates: start: 2010, end: 20220209
  6. PREDNISOLONE [Concomitant]
     Active Substance: PREDNISOLONE
     Indication: Arthralgia
     Dosage: 7.5 MILLIGRAM
     Route: 048
     Dates: start: 2010, end: 20220209
  7. ULTRACET ER SEMI [Concomitant]
     Indication: Arthralgia
     Dosage: UNK
     Route: 048
     Dates: start: 20210415, end: 20220209
  8. CELEBREX [Concomitant]
     Active Substance: CELECOXIB
     Indication: Arthralgia
     Dosage: 200 MILLIGRAM
     Route: 048
     Dates: start: 20210415, end: 20220209
  9. K CAB [Concomitant]
     Indication: Arthralgia
     Dosage: 50 MILLIGRAM
     Route: 048
     Dates: start: 20210415, end: 20220209
  10. REBAMIPIDE [Concomitant]
     Active Substance: REBAMIPIDE
     Indication: Arthralgia
     Dosage: 100 MILLIGRAM
     Route: 048
     Dates: start: 20210415, end: 20220209
  11. PIPERACILLIN SODIUM\TAZOBACTAM SODIUM [Concomitant]
     Active Substance: PIPERACILLIN SODIUM\TAZOBACTAM SODIUM
     Indication: Pneumonia
     Dosage: 18 GRAM
     Route: 042
     Dates: start: 20220115, end: 20220209
  12. ZOLPIDEM TARTRATE [Concomitant]
     Active Substance: ZOLPIDEM TARTRATE
     Indication: Insomnia
     Dosage: 10 MILLIGRAM
     Route: 048
     Dates: start: 20220105, end: 20220209
  13. METHYLCOBALAMIN [Concomitant]
     Active Substance: METHYLCOBALAMIN
     Indication: Decreased appetite
     Dosage: 0.5 MILLIGRAM
     Route: 048
     Dates: start: 20211215, end: 20220111
  14. ARTEMISIA ARGYI LEAF [Concomitant]
     Active Substance: ARTEMISIA ARGYI LEAF
     Indication: Prophylaxis against gastrointestinal ulcer
     Dosage: 180 MILLIGRAM
     Route: 048
     Dates: start: 20220105, end: 20220209
  15. RABIET [Concomitant]
     Indication: Gastritis
     Dosage: 20 MILLIGRAM
     Dates: start: 20211227, end: 20220203
  16. PROCATEROL HYDROCHLORIDE [Concomitant]
     Active Substance: PROCATEROL HYDROCHLORIDE
     Indication: Non-small cell lung cancer
     Dosage: 50 MICROGRAM
     Route: 048
     Dates: start: 20211018, end: 20220209
  17. MOSAPRIDE CITRATE [Concomitant]
     Active Substance: MOSAPRIDE CITRATE
     Indication: Gastritis
     Dosage: 15 MILLIGRAM
     Route: 048
     Dates: start: 20220105, end: 20220119

REACTIONS (1)
  - Myocardial infarction [Fatal]

NARRATIVE: CASE EVENT DATE: 20220112
